FAERS Safety Report 20449212 (Version 1)
Quarter: 2022Q1

REPORT INFORMATION
  Report Type: Spontaneous
  Country: CN (occurrence: CN)
  Receive Date: 20220209
  Receipt Date: 20220209
  Transmission Date: 20220423
  Serious: Yes (Other)
  Sender: FDA-Public Use
  Company Number: CN-BAYER-2022A019207

PATIENT
  Age: 78 Year
  Sex: Male
  Weight: 55 kg

DRUGS (3)
  1. AVELOX [Suspect]
     Active Substance: MOXIFLOXACIN HYDROCHLORIDE
     Indication: Systemic lupus erythematosus
     Dosage: 0.4 G, QD
     Route: 041
     Dates: start: 20220125, end: 20220128
  2. AVELOX [Suspect]
     Active Substance: MOXIFLOXACIN HYDROCHLORIDE
     Indication: Arthritis bacterial
  3. LINEZOLID [Concomitant]
     Active Substance: LINEZOLID
     Indication: Anti-infective therapy
     Dosage: 300 MG, BID
     Route: 041
     Dates: start: 20220113, end: 20220121

REACTIONS (3)
  - Hallucination [Recovering/Resolving]
  - Depressed level of consciousness [Recovering/Resolving]
  - Off label use [None]

NARRATIVE: CASE EVENT DATE: 20220125
